FAERS Safety Report 23332778 (Version 1)
Quarter: 2023Q4

REPORT INFORMATION
  Report Type: Spontaneous
  Country: RU (occurrence: RU)
  Receive Date: 20231222
  Receipt Date: 20231222
  Transmission Date: 20240110
  Serious: Yes (Other)
  Sender: FDA-Public Use
  Company Number: RU-AMERICAN REGENT INC-2023003025

PATIENT
  Age: 32 Year
  Sex: Male

DRUGS (3)
  1. FERINJECT [Suspect]
     Active Substance: FERRIC CARBOXYMALTOSE
     Indication: Iron deficiency anaemia
     Dosage: 500 MG, 1 IN 1 WK
     Dates: start: 20231207, end: 20231207
  2. CIMZIA [Concomitant]
     Active Substance: CERTOLIZUMAB PEGOL
     Indication: Crohn^s disease
     Dosage: 400 MILLIGRAM, 1 IN 4 WK
     Route: 058
     Dates: start: 20190802
  3. SPAREX [Concomitant]
     Indication: Product used for unknown indication
     Dosage: 600 MG (200 MG, 3 IN 1 D)
     Route: 065
     Dates: start: 20231204

REACTIONS (4)
  - Feeling hot [Recovered/Resolved]
  - Erythema [Recovered/Resolved]
  - Flushing [Recovered/Resolved]
  - Dyspnoea [Recovered/Resolved]

NARRATIVE: CASE EVENT DATE: 20231207
